FAERS Safety Report 10509897 (Version 1)
Quarter: 2014Q4

REPORT INFORMATION
  Report Type: Spontaneous
  Country: US (occurrence: US)
  Receive Date: 20141010
  Receipt Date: 20141010
  Transmission Date: 20150528
  Serious: Yes (Hospitalization)
  Sender: FDA-Public Use
  Company Number: US-UNITED THERAPEUTICS-UNT-2014-008721

PATIENT
  Age: 14 Year
  Sex: Female
  Weight: 45.35 kg

DRUGS (2)
  1. LETAIRIS [Concomitant]
     Active Substance: AMBRISENTAN
     Indication: PRODUCT USED FOR UNKNOWN INDICATION
  2. REMODULIN [Suspect]
     Active Substance: TREPROSTINIL
     Indication: PULMONARY ARTERIAL HYPERTENSION
     Dosage: 0.2029 ?G/KG, CONTINUING
     Route: 058
     Dates: start: 20130417

REACTIONS (2)
  - Catheterisation cardiac [Unknown]
  - Haemoptysis [Unknown]

NARRATIVE: CASE EVENT DATE: 201409
